FAERS Safety Report 6299506-2 (Version None)
Quarter: 2009Q3

REPORT INFORMATION
  Report Type: 
  Country: None (occurrence: None)
  Receive Date: 20090806
  Receipt Date: 20090805
  Transmission Date: 20100115
  Serious: Yes (Other)
  Sender: FDA-Public Use
  Company Number: D0062502A

PATIENT
  Sex: Female

DRUGS (2)
  1. VALTREX [Suspect]
     Indication: HERPES ZOSTER
     Dosage: 500MG UNKNOWN
     Route: 048
     Dates: start: 20090720, end: 20090728
  2. CHEMOTHERAPY [Suspect]
     Route: 065
     Dates: start: 20090716

REACTIONS (1)
  - LEUKOPENIA [None]
